FAERS Safety Report 17109688 (Version 1)
Quarter: 2019Q4

REPORT INFORMATION
  Report Type: Spontaneous
  Country: AU (occurrence: AU)
  Receive Date: 20191204
  Receipt Date: 20191204
  Transmission Date: 20200122
  Serious: Yes (Other)
  Sender: FDA-Public Use
  Company Number: AU-COLGATE PALMOLIVE COMPANY-20191102951

PATIENT
  Sex: Male

DRUGS (1)
  1. SAVACOL RINSE REGULAR [Suspect]
     Active Substance: BENZOCAINE\CHLORHEXIDINE HYDROCHLORIDE
     Dosage: UNKNOWN DOSE
     Dates: start: 20191126, end: 20191126

REACTIONS (12)
  - Glossodynia [Not Recovered/Not Resolved]
  - Tongue discomfort [Not Recovered/Not Resolved]
  - Anaphylactic reaction [Recovering/Resolving]
  - Choking [Recovering/Resolving]
  - Mouth swelling [Recovering/Resolving]
  - Pharyngeal swelling [Recovering/Resolving]
  - Heart rate increased [Recovering/Resolving]
  - Gingival pain [Not Recovered/Not Resolved]
  - Dyspnoea [Recovering/Resolving]
  - Respiratory tract oedema [Recovering/Resolving]
  - Swollen tongue [Recovering/Resolving]
  - Oesophageal oedema [Recovering/Resolving]

NARRATIVE: CASE EVENT DATE: 20191126
